FAERS Safety Report 5179880-0 (Version None)
Quarter: 2006Q4

REPORT INFORMATION
  Report Type: 
  Country: None (occurrence: None)
  Receive Date: 20061212
  Receipt Date: 20061129
  Transmission Date: 20070319
  Serious: Yes (Hospitalization)
  Sender: FDA-Public Use
  Company Number: 2006147948

PATIENT
  Age: 52 Year
  Sex: Female

DRUGS (4)
  1. SOMAVERT [Suspect]
     Indication: ACROMEGALY
     Dosage: 10 MG SUBCUTANEOUS
     Route: 058
     Dates: start: 20061129
  2. PARLODEL [Concomitant]
  3. LETTER (LEVOTHYROXINE SODIUM) [Concomitant]
  4. CINCOFARM (OXITRIPTAN) [Concomitant]

REACTIONS (9)
  - ANAPHYLACTIC REACTION [None]
  - ANXIETY [None]
  - DYSPHONIA [None]
  - DYSPNOEA [None]
  - INFLUENZA [None]
  - MALAISE [None]
  - NASAL CONGESTION [None]
  - RHINORRHOEA [None]
  - THROAT TIGHTNESS [None]
